FAERS Safety Report 14323946 (Version 4)
Quarter: 2022Q4

REPORT INFORMATION
  Report Type: Report from Study
  Country: TR (occurrence: None)
  Receive Date: 20171226
  Receipt Date: 20221118
  Transmission Date: 20230113
  Serious: Yes (Death, Hospitalization)
  Sender: FDA-Public Use
  Company Number: TR-ROCHE-2028912

PATIENT
  Age: 69 Year
  Sex: Male
  Weight: 62.5 kg

DRUGS (26)
  1. ATEZOLIZUMAB [Suspect]
     Active Substance: ATEZOLIZUMAB
     Indication: Transitional cell carcinoma
     Dosage: MOST RECENT DOSE PRIOR TO SAE ON 16/NOV/2017
     Route: 042
     Dates: start: 20171116
  2. GEMCITABINE [Suspect]
     Active Substance: GEMCITABINE
     Indication: Transitional cell carcinoma
     Dosage: MOST RECENT DOSE OF GEMCITABINE PRIOR TO SAE- 16/NOV/2017 (1600 MG)
     Route: 042
     Dates: start: 20171116
  3. CISPLATIN [Suspect]
     Active Substance: CISPLATIN
     Indication: Transitional cell carcinoma
     Dosage: MOST RECENT DOSE PRIOR TO SAE ON 16/NOV/2017 (112 MG).
     Route: 042
     Dates: start: 20171116
  4. PROPRANOLOL HYDROCHLORIDE [Concomitant]
     Active Substance: PROPRANOLOL HYDROCHLORIDE
     Indication: Hypertension
     Route: 048
     Dates: start: 2007, end: 20171219
  5. DEKORT [Concomitant]
     Active Substance: DEXAMETHASONE
     Indication: Hypersensitivity
     Route: 042
     Dates: start: 20171116, end: 20171116
  6. RANITIDINE HYDROCHLORIDE [Concomitant]
     Active Substance: RANITIDINE HYDROCHLORIDE
     Route: 042
     Dates: start: 20171116, end: 20171116
  7. SETRON (TURKEY) [Concomitant]
     Indication: Nausea
     Route: 042
     Dates: start: 20171116, end: 20171116
  8. ATIVAN EXPIDET [Concomitant]
     Indication: Insomnia
     Route: 048
     Dates: start: 20171116, end: 20171206
  9. EMEND [Concomitant]
     Active Substance: APREPITANT
     Indication: Nausea
     Route: 048
     Dates: start: 20171116, end: 20171118
  10. ZYPREXA [Concomitant]
     Active Substance: OLANZAPINE
     Indication: Nausea
     Route: 048
     Dates: start: 20171116, end: 20171118
  11. OKSAPAR [Concomitant]
     Indication: Deep vein thrombosis
     Route: 042
     Dates: start: 20171123, end: 20171218
  12. NYSTATIN [Concomitant]
     Active Substance: NYSTATIN
     Indication: Oral candidiasis
     Route: 048
     Dates: start: 20171123, end: 20171123
  13. PROGAS [Concomitant]
     Route: 042
     Dates: start: 20171123, end: 20171218
  14. METOPROLOL [Concomitant]
     Active Substance: METOPROLOL
     Indication: Tachycardia
     Route: 048
     Dates: start: 20171127, end: 20171218
  15. CARDENOR [Concomitant]
     Indication: Hypotension
     Route: 042
     Dates: start: 20171127, end: 20171208
  16. MEPOLEX [Concomitant]
     Indication: Hypertension
     Route: 048
     Dates: start: 20171127, end: 20171127
  17. PROPOFOL [Concomitant]
     Active Substance: PROPOFOL
     Indication: Endotracheal intubation
     Route: 042
     Dates: start: 20171127, end: 20171130
  18. RENTANIL [Concomitant]
     Indication: Hypotension
     Route: 042
     Dates: start: 20171127, end: 20171218
  19. SEROQUEL [Concomitant]
     Active Substance: QUETIAPINE FUMARATE
     Indication: Agitation
     Route: 042
     Dates: start: 20171129, end: 20171218
  20. VIALEBEX [Concomitant]
     Active Substance: ALBUMIN HUMAN
     Indication: Hypoalbuminaemia
     Route: 042
     Dates: start: 20171130, end: 20171215
  21. FUROMID [Concomitant]
     Route: 042
     Dates: start: 20171201, end: 20171218
  22. PHENIRAMINE [Concomitant]
     Active Substance: PHENIRAMINE
     Indication: Hypersensitivity
     Route: 042
     Dates: start: 20171205, end: 20171205
  23. RAGASIT [Concomitant]
     Indication: Ulcer
     Route: 042
     Dates: start: 20171205, end: 20171205
  24. LORDES [Concomitant]
     Indication: Hypersensitivity
     Route: 042
     Dates: start: 20171206, end: 20171206
  25. VASPARIN [Concomitant]
     Indication: Deep vein thrombosis
     Route: 042
     Dates: start: 20171211, end: 20171211
  26. CALCIUM PICKEN [Concomitant]
     Indication: Hypocalcaemia
     Route: 042
     Dates: start: 20171214, end: 20171214

REACTIONS (2)
  - Respiratory failure [Fatal]
  - Acute kidney injury [Recovered/Resolved]

NARRATIVE: CASE EVENT DATE: 20171118
